FAERS Safety Report 17745633 (Version 1)
Quarter: 2020Q2

REPORT INFORMATION
  Report Type: Spontaneous
  Country: US (occurrence: US)
  Receive Date: 20200505
  Receipt Date: 20200505
  Transmission Date: 20200714
  Serious: No
  Sender: FDA-Public Use
  Company Number: None

PATIENT
  Age: 53 Year
  Sex: Female

DRUGS (2)
  1. CAPECITABINE. [Suspect]
     Active Substance: CAPECITABINE
     Indication: RECTAL CANCER
     Route: 048
  2. NONE LISTED [Concomitant]

REACTIONS (5)
  - Nausea [None]
  - Dehydration [None]
  - Colectomy [None]
  - Vomiting [None]
  - Liver injury [None]

NARRATIVE: CASE EVENT DATE: 20200323
